FAERS Safety Report 5293542-0 (Version None)
Quarter: 2007Q2

REPORT INFORMATION
  Report Type: 
  Country: None (occurrence: None)
  Receive Date: 20070411
  Receipt Date: 20070404
  Transmission Date: 20071010
  Serious: Yes (Death)
  Sender: FDA-Public Use
  Company Number: PL-GLAXOSMITHKLINE-B0465694A

PATIENT
  Age: 56 Year
  Sex: Female

DRUGS (1)
  1. ZINACEF [Suspect]
     Indication: LOWER RESPIRATORY TRACT INFECTION
     Dosage: 1AMP PER DAY
     Route: 030
     Dates: start: 20070308, end: 20070308

REACTIONS (2)
  - ANAPHYLACTIC SHOCK [None]
  - PULMONARY EMBOLISM [None]
